FAERS Safety Report 8513875-1 (Version None)
Quarter: 2012Q3

REPORT INFORMATION
  Report Type: 
  Country: None (occurrence: None)
  Receive Date: 20120717
  Receipt Date: 20120703
  Transmission Date: 20120928
  Serious: Yes (Hospitalization)
  Sender: FDA-Public Use
  Company Number: FR-JNJFOC-20120706542

PATIENT
  Age: 81 Year
  Sex: Male

DRUGS (15)
  1. ATORVASTATIN [Suspect]
     Indication: PRODUCT USED FOR UNKNOWN INDICATION
     Route: 065
  2. SOTALOL HYDROCHLORIDE [Suspect]
     Indication: PRODUCT USED FOR UNKNOWN INDICATION
     Route: 048
     Dates: start: 20090101
  3. IBUPROFEN [Suspect]
     Indication: PRODUCT USED FOR UNKNOWN INDICATION
     Dosage: UNSPECIFIED DOSE AS NEEDED
     Route: 065
  4. IRBESARTAN AND HYDROCHLOROTHIAZIDE [Suspect]
     Indication: PRODUCT USED FOR UNKNOWN INDICATION
     Dosage: 300MG/25MG
     Route: 065
     Dates: start: 20060101
  5. PIASCLEDINE [Suspect]
     Indication: PRODUCT USED FOR UNKNOWN INDICATION
     Dosage: 300MG CAPSULES, 600MG TO 900MG DAILY
     Route: 065
     Dates: start: 20070101
  6. ATARAX [Suspect]
     Indication: PRODUCT USED FOR UNKNOWN INDICATION
     Route: 065
  7. MIRTAZAPINE [Suspect]
     Indication: DEPRESSION
     Route: 048
     Dates: start: 20120102, end: 20120204
  8. NICARDIPINE HCL [Suspect]
     Indication: PRODUCT USED FOR UNKNOWN INDICATION
     Route: 048
     Dates: end: 20110101
  9. NABUMETONE [Suspect]
     Indication: PRODUCT USED FOR UNKNOWN INDICATION
     Dosage: 500MG IN THE MORNING AND 500MG IN THE EVENING
     Route: 065
     Dates: start: 20100101
  10. RABEPRAZOLE SODIUM [Suspect]
     Indication: PRODUCT USED FOR UNKNOWN INDICATION
     Dosage: 20MG AT MID DAY AND 20MG IN EVENING
     Route: 065
     Dates: start: 20100101
  11. CODEINE PHOSPHATE AND ACETAMINOPHEN [Suspect]
     Indication: PRODUCT USED FOR UNKNOWN INDICATION
     Route: 065
  12. METFORMIN HCL [Suspect]
     Indication: PRODUCT USED FOR UNKNOWN INDICATION
     Dosage: 1 DOSAGE FORM IN MORNING AND 1 DOSAGE FORM IN EVENING
     Route: 065
  13. NICARDIPINE HCL [Suspect]
     Route: 048
     Dates: start: 20070101
  14. AVODART [Suspect]
     Indication: PRODUCT USED FOR UNKNOWN INDICATION
     Route: 065
  15. ZOPICLONE [Suspect]
     Indication: PRODUCT USED FOR UNKNOWN INDICATION
     Dosage: 7.5MG IN EVENING
     Route: 065

REACTIONS (4)
  - INSOMNIA [None]
  - WOUND [None]
  - OEDEMA [None]
  - PAIN IN EXTREMITY [None]
